FAERS Safety Report 19469413 (Version 1)
Quarter: 2021Q2

REPORT INFORMATION
  Report Type: Spontaneous
  Country: US (occurrence: US)
  Receive Date: 20210629
  Receipt Date: 20210629
  Transmission Date: 20210717
  Serious: No
  Sender: FDA-Public Use
  Company Number: US-JNJFOC-20210648733

PATIENT
  Age: 40 Year
  Sex: Male

DRUGS (6)
  1. INVEGA SUSTENNA [Suspect]
     Active Substance: PALIPERIDONE PALMITATE
     Route: 030
     Dates: start: 2014
  2. INVEGA SUSTENNA [Suspect]
     Active Substance: PALIPERIDONE PALMITATE
     Route: 030
     Dates: start: 202102
  3. PALIPERIDONE. [Concomitant]
     Active Substance: PALIPERIDONE
     Route: 048
     Dates: start: 202012
  4. LOXAPINE. [Concomitant]
     Active Substance: LOXAPINE
     Route: 048
     Dates: start: 2019
  5. INVEGA SUSTENNA [Suspect]
     Active Substance: PALIPERIDONE PALMITATE
     Indication: PRODUCT USED FOR UNKNOWN INDICATION
     Route: 030
     Dates: start: 2012
  6. HALOPERIDOL. [Concomitant]
     Active Substance: HALOPERIDOL
     Route: 048

REACTIONS (3)
  - Somnolence [Unknown]
  - Product use issue [Unknown]
  - Off label use [Unknown]

NARRATIVE: CASE EVENT DATE: 2012
